FAERS Safety Report 8438168-2 (Version None)
Quarter: 2012Q2

REPORT INFORMATION
  Report Type: 
  Country: None (occurrence: None)
  Receive Date: 20120614
  Receipt Date: 20120607
  Transmission Date: 20120825
  Serious: Yes (Hospitalization)
  Sender: FDA-Public Use
  Company Number: ES-ROCHE-1076972

PATIENT
  Sex: Male
  Weight: 78 kg

DRUGS (5)
  1. ROFERON-A [Suspect]
     Indication: METASTATIC RENAL CELL CARCINOMA
     Route: 058
     Dates: start: 20100111, end: 20100312
  2. OMEPRAZOLE [Concomitant]
  3. TRAMADOL HCL [Concomitant]
  4. AVASTIN [Suspect]
     Indication: METASTATIC RENAL CELL CARCINOMA
     Route: 048
     Dates: start: 20100111, end: 20100119
  5. NOLOTIL [Concomitant]

REACTIONS (5)
  - DIARRHOEA [None]
  - ASTHENIA [None]
  - TOXICITY TO VARIOUS AGENTS [None]
  - VOMITING [None]
  - PYREXIA [None]
